FAERS Safety Report 16432772 (Version 1)
Quarter: 2019Q2

REPORT INFORMATION
  Report Type: Spontaneous
  Country: US (occurrence: US)
  Receive Date: 20190614
  Receipt Date: 20190614
  Transmission Date: 20190711
  Serious: Yes (Hospitalization, Other)
  Sender: FDA-Public Use
  Company Number: US-MYLANLABS-2019M1054668

PATIENT
  Age: 42 Year
  Sex: Male

DRUGS (2)
  1. KETAMINE [Suspect]
     Active Substance: KETAMINE
     Dosage: 0.12 MG/KG/H
     Route: 041
  2. KETAMINE [Suspect]
     Active Substance: KETAMINE
     Indication: ABDOMINAL PAIN
     Dosage: 1 MG/KG
     Route: 042

REACTIONS (1)
  - Diabetes insipidus [Recovered/Resolved]
